FAERS Safety Report 16256784 (Version 1)
Quarter: 2019Q2

REPORT INFORMATION
  Report Type: Spontaneous
  Country: NL (occurrence: NL)
  Receive Date: 20190430
  Receipt Date: 20190430
  Transmission Date: 20190711
  Serious: Yes (Other)
  Sender: FDA-Public Use
  Company Number: NL-MYLANLABS-2019M1040348

PATIENT
  Age: 33 Year
  Sex: Female

DRUGS (8)
  1. CODEINEFOSFAAT [Concomitant]
     Active Substance: CODEINE PHOSPHATE
     Dosage: 20 MILLIGRAM, ASNECESSARY, 1 DD 1 VN ZN
     Route: 048
  2. VESICARE [Concomitant]
     Active Substance: SOLIFENACIN SUCCINATE
     Dosage: 5 MILLIGRAM, QD
     Route: 048
  3. DICLOFENAC NA [Concomitant]
     Active Substance: DICLOFENAC SODIUM
     Dosage: 100 MILLIGRAM, QD, ASNECESSARY, 1DD 1-2 X PER DAG 1 TABLET
     Route: 048
  4. ETHINYLESTRADIOL/LEVONORGESTREL [Suspect]
     Active Substance: ETHINYL ESTRADIOL\LEVONORGESTREL
     Indication: CONTRACEPTION
     Dosage: 1 DOSAGE FORM, CYCLE, EXTRA INFO: 1X DAAGS 1 TABLET GEDURENDE 3 WEKEN, DAARNA 1 WEEK STOPPEN
     Route: 048
     Dates: start: 20150302, end: 20161014
  5. AZITROMYCINE [Suspect]
     Active Substance: AZITHROMYCIN
     Indication: LUNG INFECTION
     Dosage: 750 MILLIGRAM, QW
     Route: 048
     Dates: start: 20160902
  6. DESMOPRESSINE ACETAAT [Concomitant]
     Dosage: 0.0 MILLIGRAM, QD, 1 DD 2
     Route: 048
  7. CLARITROMYCINE [Suspect]
     Active Substance: CLARITHROMYCIN
     Indication: PHARYNGITIS
     Dosage: 1000 MILLIGRAM, QD
     Route: 048
     Dates: start: 20160913
  8. OMECAT [Concomitant]
     Active Substance: OMEPRAZOLE
     Dosage: 80 MILLIGRAM, QD
     Route: 048

REACTIONS (2)
  - Unintended pregnancy [Not Recovered/Not Resolved]
  - Therapeutic response unexpected [Not Recovered/Not Resolved]

NARRATIVE: CASE EVENT DATE: 20161014
